FAERS Safety Report 11222660 (Version 2)
Quarter: 2015Q3

REPORT INFORMATION
  Report Type: Report from Study
  Country: US (occurrence: US)
  Receive Date: 20150626
  Receipt Date: 20150825
  Transmission Date: 20151125
  Serious: Yes (Hospitalization, Other)
  Sender: FDA-Public Use
  Company Number: US-VERTEX PHARMACEUTICALS-2015-002771

PATIENT
  Age: 40 Year
  Sex: Female

DRUGS (1)
  1. KALYDECO [Suspect]
     Active Substance: IVACAFTOR
     Indication: CYSTIC FIBROSIS
     Dosage: 150 MG, BID
     Route: 048
     Dates: start: 20140731

REACTIONS (4)
  - Pneumonia [Unknown]
  - Feeling abnormal [Unknown]
  - Chest discomfort [Unknown]
  - Thrombosis [Unknown]

NARRATIVE: CASE EVENT DATE: 20150531
